FAERS Safety Report 12550627 (Version 2)
Quarter: 2016Q3

REPORT INFORMATION
  Report Type: Spontaneous
  Country: US (occurrence: US)
  Receive Date: 20160712
  Receipt Date: 20160727
  Transmission Date: 20161109
  Serious: Yes (Hospitalization)
  Sender: FDA-Public Use
  Company Number: US-ACTELION-A-US2016-138939

PATIENT
  Age: 45 Year
  Sex: Female

DRUGS (1)
  1. VELETRI [Suspect]
     Active Substance: EPOPROSTENOL
     Indication: PULMONARY ARTERIAL HYPERTENSION
     Dosage: 9 NG/KG, PER MIN
     Route: 042
     Dates: start: 20140127

REACTIONS (4)
  - Catheter site haemorrhage [Recovering/Resolving]
  - Feeling abnormal [Recovering/Resolving]
  - Catheter management [Recovering/Resolving]
  - Device breakage [Recovering/Resolving]

NARRATIVE: CASE EVENT DATE: 20160627
